FAERS Safety Report 25268044 (Version 1)
Quarter: 2025Q2

REPORT INFORMATION
  Report Type: Spontaneous
  Country: US (occurrence: US)
  Receive Date: 20250505
  Receipt Date: 20250505
  Transmission Date: 20250717
  Serious: No
  Sender: CSL BEHRING
  Company Number: US-BEH-2025203162

PATIENT
  Age: 84 Year
  Sex: Female

DRUGS (2)
  1. VELTASSA [Suspect]
     Active Substance: PATIROMER
     Dosage: 8.4 G, TID
     Route: 065
  2. VELTASSA [Suspect]
     Active Substance: PATIROMER
     Dosage: 8.4 G TID
     Route: 065

REACTIONS (4)
  - Abdominal discomfort [Unknown]
  - Poor quality product administered [Unknown]
  - Off label use [Unknown]
  - Product colour issue [Unknown]

NARRATIVE: CASE EVENT DATE: 20250418
